FAERS Safety Report 4525872-1 (Version None)
Quarter: 2004Q4

REPORT INFORMATION
  Report Type: 
  Country: None (occurrence: None)
  Receive Date: 20041124
  Receipt Date: 20040302
  Transmission Date: 20050328
  Serious: Yes (Other)
  Sender: FDA-Public Use
  Company Number: 2004003729

PATIENT
  Age: 76 Year
  Sex: Female

DRUGS (4)
  1. TIKOSYN [Suspect]
     Indication: ATRIAL FIBRILLATION
     Dosage: 875 MCG (BID), ORAL
     Route: 048
  2. METOPROLOL TARTRATE [Concomitant]
  3. POTASSIUM CHLORIDE [Concomitant]
  4. WARFARIN SODIUM [Concomitant]

REACTIONS (3)
  - CARDIAC PACEMAKER INSERTION [None]
  - HEADACHE [None]
  - SURGERY [None]
